FAERS Safety Report 17931521 (Version 1)
Quarter: 2020Q2

REPORT INFORMATION
  Report Type: Spontaneous
  Country: US (occurrence: US)
  Receive Date: 20200623
  Receipt Date: 20200623
  Transmission Date: 20200714
  Serious: Yes (Hospitalization)
  Sender: FDA-Public Use
  Company Number: US-JNJFOC-20200624006

PATIENT
  Sex: Female

DRUGS (1)
  1. XARELTO [Suspect]
     Active Substance: RIVAROXABAN
     Indication: CARDIAC DISORDER
     Route: 048

REACTIONS (5)
  - Loss of personal independence in daily activities [Unknown]
  - Hospitalisation [Unknown]
  - Visual impairment [Unknown]
  - Herpes zoster [Unknown]
  - Product dose omission [Unknown]
